FAERS Safety Report 6361009-4 (Version None)
Quarter: 2009Q3

REPORT INFORMATION
  Report Type: 
  Country: None (occurrence: None)
  Receive Date: 20090918
  Receipt Date: 20090727
  Transmission Date: 20100115
  Serious: No
  Sender: FDA-Public Use
  Company Number: A0800495A

PATIENT
  Sex: Male

DRUGS (2)
  1. PROMACTA [Suspect]
     Indication: IDIOPATHIC THROMBOCYTOPENIC PURPURA
     Dosage: 50MG PER DAY
     Route: 048
  2. NEXIUM [Concomitant]

REACTIONS (4)
  - BLOOD BLISTER [None]
  - EPISTAXIS [None]
  - PETECHIAE [None]
  - TREATMENT NONCOMPLIANCE [None]
